FAERS Safety Report 17714438 (Version 2)
Quarter: 2020Q2

REPORT INFORMATION
  Report Type: Report from Study
  Country: DE (occurrence: DE)
  Receive Date: 20200427
  Receipt Date: 20200504
  Transmission Date: 20200714
  Serious: Yes (Other)
  Sender: FDA-Public Use
  Company Number: NVSC2020DE112822

PATIENT
  Age: 13 Year
  Sex: Male

DRUGS (1)
  1. SOMATROPIN. [Suspect]
     Active Substance: SOMATROPIN
     Indication: GROWTH HORMONE DEFICIENCY
     Dosage: UNK, QD (15 MG/1.5 ML)
     Route: 058

REACTIONS (2)
  - Enchondromatosis [Unknown]
  - Osteochondroma [Unknown]

NARRATIVE: CASE EVENT DATE: 20200420
